FAERS Safety Report 4287841-9 (Version None)
Quarter: 2004Q1

REPORT INFORMATION
  Report Type: 
  Country: None (occurrence: None)
  Receive Date: 20040209
  Receipt Date: 20031007
  Transmission Date: 20041129
  Serious: No
  Sender: FDA-Public Use
  Company Number: US-GLAXOSMITHKLINE-A0429244A

PATIENT
  Age: 76 Year
  Sex: Female
  Weight: 60.5 kg

DRUGS (11)
  1. PAXIL [Suspect]
     Indication: DEPRESSION
     Dosage: 12.5MG PER DAY
     Route: 048
     Dates: start: 20030930, end: 20031003
  2. SYNTHROID [Concomitant]
     Dosage: .075U PER DAY
     Route: 048
  3. LOTREL [Concomitant]
     Route: 048
  4. TEMAZEPAM [Concomitant]
     Dosage: 15MG PER DAY
     Route: 048
  5. ASPIRIN [Concomitant]
     Dosage: 81MG PER DAY
     Route: 048
  6. VIT E [Concomitant]
     Dosage: 200MG THREE TIMES PER DAY
     Route: 048
  7. CRANBERRY [Concomitant]
     Route: 048
  8. MULTIVITAMIN [Concomitant]
     Route: 048
  9. VITAMIN B COMPLEX CAP [Concomitant]
     Route: 048
  10. ESTER C [Concomitant]
  11. PREVACID [Concomitant]
     Dosage: 15MG TWICE PER DAY
     Route: 048

REACTIONS (5)
  - DECREASED APPETITE [None]
  - DYSPEPSIA [None]
  - GASTROOESOPHAGEAL REFLUX DISEASE [None]
  - HEADACHE [None]
  - NAUSEA [None]
